FAERS Safety Report 10067300 (Version 1)
Quarter: 2014Q2

REPORT INFORMATION
  Report Type: Report from Study
  Country: NL (occurrence: NL)
  Receive Date: 20140409
  Receipt Date: 20140409
  Transmission Date: 20141212
  Serious: Yes (Other)
  Sender: FDA-Public Use
  Company Number: NL-009507513-1403NLD014511

PATIENT
  Sex: 0

DRUGS (1)
  1. TEMOZOLOMIDE [Suspect]
     Indication: GLIOMA
     Dosage: UNK
     Route: 048

REACTIONS (1)
  - Cerebellar atrophy [Unknown]
